FAERS Safety Report 4425617-X (Version None)
Quarter: 2004Q3

REPORT INFORMATION
  Report Type: 
  Country: None (occurrence: None)
  Receive Date: 20040810
  Receipt Date: 20040726
  Transmission Date: 20050211
  Serious: Yes (Other)
  Sender: FDA-Public Use
  Company Number: US-2004-029771

PATIENT
  Sex: 0

DRUGS (1)
  1. REFLUDAN [Suspect]
     Dosage: 3.2 MG/H, INTRAVENOUS
     Route: 042
     Dates: start: 20040701, end: 20040701

REACTIONS (2)
  - ACTIVATED PARTIAL THROMBOPLASTIN TIME PROLONGED [None]
  - MEDICATION ERROR [None]
